FAERS Safety Report 18888332 (Version 1)
Quarter: 2021Q1

REPORT INFORMATION
  Report Type: Spontaneous
  Country: US (occurrence: US)
  Receive Date: 20210213
  Receipt Date: 20210213
  Transmission Date: 20210420
  Serious: Yes (Other)
  Sender: FDA-Public Use
  Company Number: US-UCBSA-2021005867

PATIENT
  Sex: Male

DRUGS (1)
  1. NAYZILAM [Suspect]
     Active Substance: MIDAZOLAM
     Indication: SEIZURE
     Dosage: UNK, AS NEEDED (PRN)

REACTIONS (3)
  - Blood test abnormal [Unknown]
  - Seizure [Recovered/Resolved]
  - Somnolence [Unknown]
